FAERS Safety Report 10570568 (Version 1)
Quarter: 2014Q4

REPORT INFORMATION
  Report Type: Spontaneous
  Country: DE (occurrence: DE)
  Receive Date: 20141107
  Receipt Date: 20141107
  Transmission Date: 20150529
  Serious: Yes (Hospitalization)
  Sender: FDA-Public Use
  Company Number: DE-ASTRAZENECA-2014SE83949

PATIENT
  Age: 43 Year
  Sex: Male

DRUGS (5)
  1. SEROQUEL [Suspect]
     Active Substance: QUETIAPINE FUMARATE
     Route: 048
     Dates: start: 20140913, end: 20140914
  2. NEUROCIL [Interacting]
     Active Substance: LEVOMEPROMAZINE HYDROCHLORIDE\LEVOMEPROMAZINE MALEATE
     Route: 048
     Dates: start: 20140913, end: 20140913
  3. NEUROCIL [Interacting]
     Active Substance: LEVOMEPROMAZINE HYDROCHLORIDE\LEVOMEPROMAZINE MALEATE
     Route: 048
     Dates: start: 20140915, end: 20140918
  4. SEROQUEL [Interacting]
     Active Substance: QUETIAPINE FUMARATE
     Route: 048
     Dates: start: 20140915, end: 20140918
  5. HALDOL [Interacting]
     Active Substance: HALOPERIDOL
     Route: 048
     Dates: end: 20140913

REACTIONS (3)
  - Pleurothotonus [Recovered/Resolved]
  - Drug interaction [Recovered/Resolved]
  - Gait disturbance [None]

NARRATIVE: CASE EVENT DATE: 20140918
